FAERS Safety Report 12724865 (Version 2)
Quarter: 2016Q3

REPORT INFORMATION
  Report Type: Spontaneous
  Country: US (occurrence: US)
  Receive Date: 20160908
  Receipt Date: 20160924
  Transmission Date: 20161109
  Serious: No
  Sender: FDA-Public Use
  Company Number: US-GLAXOSMITHKLINE-US2016130154

PATIENT
  Age: 87 Year
  Sex: Male

DRUGS (2)
  1. BREO ELLIPTA [Suspect]
     Active Substance: FLUTICASONE FUROATE\VILANTEROL TRIFENATATE
     Dosage: 1 PUFF(S), BID
     Route: 055
     Dates: start: 20160906, end: 20160906
  2. BREO ELLIPTA [Suspect]
     Active Substance: FLUTICASONE FUROATE\VILANTEROL TRIFENATATE
     Indication: ASTHMA
     Dosage: 1 PUFF(S), SINGLE
     Route: 055
     Dates: start: 201608, end: 201608

REACTIONS (4)
  - Dyspnoea [Unknown]
  - Overdose [Unknown]
  - Drug dose omission [Unknown]
  - Extra dose administered [Unknown]

NARRATIVE: CASE EVENT DATE: 201608
